FAERS Safety Report 17877406 (Version 2)
Quarter: 2020Q3

REPORT INFORMATION
  Report Type: Spontaneous
  Country: CN (occurrence: CN)
  Receive Date: 20200609
  Receipt Date: 20200709
  Transmission Date: 20201103
  Serious: Yes (Disabling, Other)
  Sender: FDA-Public Use
  Company Number: CN-PFIZER INC-2020222112

PATIENT
  Age: 39 Year
  Sex: Female
  Weight: 57 kg

DRUGS (2)
  1. METHOTREXATE. [Suspect]
     Active Substance: METHOTREXATE
     Indication: ECTOPIC PREGNANCY
     Dosage: 22.8 MG, 1X/DAY
     Route: 030
     Dates: start: 20200518, end: 20200522
  2. MIFEPRISTONE [Suspect]
     Active Substance: MIFEPRISTONE
     Indication: ECTOPIC PREGNANCY
     Dosage: 50 MG, 1X/DAY
     Route: 048
     Dates: start: 20200518, end: 20200523

REACTIONS (13)
  - Monocyte count decreased [Recovered/Resolved]
  - Off label use [Unknown]
  - Neutrophil count decreased [Recovered/Resolved]
  - White blood cell count decreased [Recovered/Resolved]
  - Product use in unapproved indication [Unknown]
  - Pyrexia [Recovered/Resolved]
  - Tonsillar hypertrophy [Recovered/Resolved]
  - Neutrophil percentage decreased [Recovered/Resolved]
  - Rash [Recovered/Resolved]
  - Pruritus [Recovered/Resolved]
  - Mouth ulceration [Recovered/Resolved]
  - Ear pain [Recovered/Resolved]
  - Myelosuppression [Recovered/Resolved]

NARRATIVE: CASE EVENT DATE: 20200518
